FAERS Safety Report 4455718-1 (Version None)
Quarter: 2004Q3

REPORT INFORMATION
  Report Type: 
  Country: None (occurrence: None)
  Receive Date: 20040917
  Receipt Date: 20040906
  Transmission Date: 20050211
  Serious: Yes (Death)
  Sender: FDA-Public Use
  Company Number: 04P-008-0272656-00

PATIENT
  Age: 72 Year
  Sex: Female
  Weight: 40 kg

DRUGS (9)
  1. HUMIRA [Suspect]
     Indication: RHEUMATOID ARTHRITIS
     Dosage: 40 MG, 1 IN 2 WK, SUBCUTANEOUS
     Route: 058
     Dates: start: 20040629
  2. ALENDRONATE SODIUM [Concomitant]
  3. METHOTREXATE [Concomitant]
  4. ESOMEPRAZOLE [Concomitant]
  5. SOTALOL HYDROCHLORIDE [Concomitant]
  6. DIGOXIN [Concomitant]
  7. SULFASALAZINE [Suspect]
  8. TERBUTALINE SULFATE [Concomitant]
  9. BUDESONIDE [Concomitant]

REACTIONS (1)
  - RESPIRATORY FAILURE [None]
